FAERS Safety Report 8091032-3 (Version None)
Quarter: 2012Q1

REPORT INFORMATION
  Report Type: 
  Country: None (occurrence: None)
  Receive Date: 20120128
  Receipt Date: 20110830
  Transmission Date: 20120608
  Serious: No
  Sender: FDA-Public Use
  Company Number: US-ABBOTT-11P-163-0843047-00

PATIENT
  Age: 64 Year
  Sex: Female

DRUGS (5)
  1. HUMIRA [Suspect]
     Indication: CROHN'S DISEASE
     Dates: start: 20110607
  2. ATENOLOL [Concomitant]
     Indication: HYPERTENSION
  3. HUMIRA [Suspect]
     Dates: start: 20110624
  4. PREDNISONE TAB [Suspect]
     Indication: PRODUCT USED FOR UNKNOWN INDICATION
     Dosage: ONE BY MOUTH DAILY
  5. PENTASA [Concomitant]
     Indication: CROHN'S DISEASE
     Dosage: BID

REACTIONS (5)
  - DRUG EFFECT DECREASED [None]
  - BLOOD GLUCOSE INCREASED [None]
  - HAEMATOCHEZIA [None]
  - BLOOD GLUCOSE DECREASED [None]
  - DIARRHOEA [None]
